FAERS Safety Report 5969698-0 (Version None)
Quarter: 2008Q4

REPORT INFORMATION
  Report Type: 
  Country: None (occurrence: None)
  Receive Date: 20081126
  Receipt Date: 20080925
  Transmission Date: 20090506
  Serious: Yes (Death, Hospitalization)
  Sender: FDA-Public Use
  Company Number: JP-PFIZER INC-2008075411

PATIENT
  Sex: Female
  Weight: 53 kg

DRUGS (3)
  1. REVATIO [Suspect]
     Indication: PULMONARY ARTERIAL HYPERTENSION
     Route: 048
  2. PREDNISOLONE [Suspect]
  3. TACROLIMUS [Suspect]

REACTIONS (1)
  - PNEUMONIA CYTOMEGALOVIRAL [None]
